FAERS Safety Report 25484339 (Version 1)
Quarter: 2025Q2

REPORT INFORMATION
  Report Type: Spontaneous
  Country: US (occurrence: US)
  Receive Date: 20250626
  Receipt Date: 20250626
  Transmission Date: 20250716
  Serious: No
  Sender: SANOFI AVENTIS
  Company Number: US-SA-2025SA180611

PATIENT
  Age: 55 Year
  Sex: Female

DRUGS (1)
  1. DUPIXENT [Suspect]
     Active Substance: DUPILUMAB
     Indication: Bronchitis bacterial
     Dosage: 300 MG, QOW
     Route: 058

REACTIONS (3)
  - Rash [Recovered/Resolved]
  - Contusion [Recovered/Resolved]
  - Product use in unapproved indication [Unknown]
